FAERS Safety Report 25445801 (Version 3)
Quarter: 2025Q3

REPORT INFORMATION
  Report Type: Other
  Country: EU (occurrence: EU)
  Receive Date: 20250617
  Receipt Date: 20250716
  Transmission Date: 20251020
  Serious: No
  Sender: INCYTE
  Company Number: None

PATIENT
  Age: 72 Year

DRUGS (1)
  1. OPZELURA [Suspect]
     Active Substance: RUXOLITINIB PHOSPHATE
     Indication: Vitiligo
     Dosage: 1 DOSAGE FORM, Q12H (MORNING AND EVENING)

REACTIONS (1)
  - Keratoacanthoma [Recovered/Resolved]
